FAERS Safety Report 8045682-0 (Version None)
Quarter: 2012Q1

REPORT INFORMATION
  Report Type: 
  Country: None (occurrence: None)
  Receive Date: 20120113
  Receipt Date: 20120110
  Transmission Date: 20120608
  Serious: Yes (Hospitalization, Other)
  Sender: FDA-Public Use
  Company Number: BR-SANOFI-AVENTIS-2012SA002000

PATIENT
  Age: 72 Year
  Sex: Female

DRUGS (3)
  1. AUTOPEN 24 [Suspect]
     Indication: DEVICE THERAPY
  2. LANTUS [Suspect]
     Dosage: STRENGTH: 3 ML
     Route: 065
  3. NOVORAPID [Concomitant]
     Dosage: FORM CARTRIDGE 3 ML

REACTIONS (1)
  - FEMUR FRACTURE [None]
